FAERS Safety Report 8177263-2 (Version None)
Quarter: 2012Q1

REPORT INFORMATION
  Report Type: 
  Country: None (occurrence: None)
  Receive Date: 20120124
  Receipt Date: 20111031
  Transmission Date: 20120608
  Serious: No
  Sender: FDA-Public Use
  Company Number: US-006713

PATIENT
  Age: 88 Year
  Sex: Male
  Weight: 68.0396 kg

DRUGS (13)
  1. ISOSORBIDE DINITRATE [Concomitant]
  2. LIPITOR [Concomitant]
  3. FISH OIL [Concomitant]
  4. PLAVIX [Concomitant]
  5. VITAMIN D [Concomitant]
  6. CALCIUM [Concomitant]
  7. FIRMAGON [Suspect]
     Indication: PROSTATE CANCER
     Dosage: (240 MG 1X SUBCUTANEOUS)
     Route: 058
     Dates: start: 20111026
  8. WELCHOL [Concomitant]
  9. CARVEDILOL [Concomitant]
  10. ZANTAC [Concomitant]
  11. CASODEX [Concomitant]
  12. CENTRUM /01536001/ [Concomitant]
  13. ASPIRIN [Concomitant]

REACTIONS (2)
  - RASH [None]
  - CONTUSION [None]
